FAERS Safety Report 5728613-5 (Version None)
Quarter: 2008Q2

REPORT INFORMATION
  Report Type: 
  Country: None (occurrence: None)
  Receive Date: 20080502
  Receipt Date: 20080502
  Transmission Date: 20081010
  Serious: Yes (Life-Threatening)
  Sender: FDA-Public Use
  Company Number: None

PATIENT
  Age: 34 Year
  Sex: Male
  Weight: 94.3482 kg

DRUGS (1)
  1. BEVACIZUMAB 1035MG (15MG/KG) [Suspect]
     Indication: NON-SMALL CELL LUNG CANCER METASTATIC
     Dosage: 1035MG (15MG/KG) EVERY 21 TO 28 DAYS IV
     Route: 042
     Dates: start: 20070713, end: 20071227

REACTIONS (7)
  - COUGH [None]
  - ERUCTATION [None]
  - GASTROINTESTINAL NECROSIS [None]
  - NAUSEA [None]
  - OESOPHAGEAL ULCER [None]
  - RETCHING [None]
  - VOMITING [None]
